FAERS Safety Report 15729098 (Version 1)
Quarter: 2018Q4

REPORT INFORMATION
  Report Type: Spontaneous
  Country: US (occurrence: US)
  Receive Date: 20181217
  Receipt Date: 20181217
  Transmission Date: 20190205
  Serious: No
  Sender: FDA-Public Use
  Company Number: US-009507513-1811USA008325

PATIENT
  Age: 73 Year
  Sex: Female
  Weight: 64.4 kg

DRUGS (6)
  1. LOVASTATIN. [Concomitant]
     Active Substance: LOVASTATIN
     Dosage: UNK
  2. ZOCOR [Suspect]
     Active Substance: SIMVASTATIN
     Dosage: UNK
     Route: 048
     Dates: end: 2005
  3. DILTIAZEM ER [Concomitant]
     Active Substance: DILTIAZEM
     Indication: CHEST PAIN
     Dosage: 120 MG CAPS, ONCE A DAY
     Route: 048
     Dates: start: 2002
  4. POTASSIUM CHLORIDE. [Concomitant]
     Active Substance: POTASSIUM CHLORIDE
     Indication: BLOOD POTASSIUM DECREASED
     Dosage: 10 MEQ, TABLET, ONCE DAILY, BY MOUTH
     Route: 048
     Dates: start: 2014
  5. MAGNESIUM (UNSPECIFIED) [Concomitant]
     Active Substance: MAGNESIUM
     Indication: BLOOD MAGNESIUM DECREASED
     Dosage: TABLET, UNK
     Route: 048
  6. LOSARTAN POTASSIUM AND HYDROCHLOROTHIAZIDE [Concomitant]
     Active Substance: HYDROCHLOROTHIAZIDE\LOSARTAN POTASSIUM
     Dosage: 50/12.5 MG, TABLET, ONCE DA DAY,
     Route: 048
     Dates: start: 2014

REACTIONS (1)
  - Arthralgia [Recovered/Resolved]
